FAERS Safety Report 5031103-9 (Version None)
Quarter: 2006Q2

REPORT INFORMATION
  Report Type: 
  Country: None (occurrence: None)
  Receive Date: 20060504
  Receipt Date: 20060217
  Transmission Date: 20061013
  Serious: Yes (Other)
  Sender: FDA-Public Use
  Company Number: PAR_0518_2006

PATIENT

DRUGS (1)
  1. MEGACE ES [Suspect]
     Dosage: 625 MG QD PO
     Route: 048

REACTIONS (1)
  - OEDEMA [None]
